FAERS Safety Report 17375263 (Version 1)
Quarter: 2020Q1

REPORT INFORMATION
  Report Type: Spontaneous
  Country: JP (occurrence: JP)
  Receive Date: 20200205
  Receipt Date: 20200205
  Transmission Date: 20200409
  Serious: Yes (Other)
  Sender: FDA-Public Use
  Company Number: NVSJ2020JP001305

PATIENT
  Age: 81 Year
  Sex: Female

DRUGS (1)
  1. EXELON PATCH [Suspect]
     Active Substance: RIVASTIGMINE
     Indication: PRODUCT USED FOR UNKNOWN INDICATION
     Dosage: 4.5 MG,  PATCH2.5(CM2)
     Route: 062

REACTIONS (3)
  - Gait disturbance [Unknown]
  - Altered state of consciousness [Unknown]
  - Disorientation [Unknown]
